FAERS Safety Report 5009990-X (Version None)
Quarter: 2006Q2

REPORT INFORMATION
  Report Type: 
  Country: None (occurrence: None)
  Receive Date: 20060522
  Receipt Date: 20060512
  Transmission Date: 20061013
  Serious: Yes (Disabling, Other)
  Sender: FDA-Public Use
  Company Number: 2006-01-0406

PATIENT
  Age: 70 Year
  Sex: Male

DRUGS (2)
  1. INTRON A [Suspect]
     Indication: METASTATIC RENAL CELL CARCINOMA
     Dosage: 10 MU TIW SUBCUTANEOUS
     Route: 058
     Dates: end: 20051130
  2. FLUOXETINE [Concomitant]

REACTIONS (15)
  - APATHY [None]
  - APRAXIA [None]
  - BALANCE DISORDER [None]
  - BLOOD CALCIUM INCREASED [None]
  - CEREBELLAR ATROPHY [None]
  - CEREBRAL ATROPHY [None]
  - CEREBRAL VENTRICLE DILATATION [None]
  - CONFUSIONAL STATE [None]
  - COORDINATION ABNORMAL [None]
  - DECREASED ACTIVITY [None]
  - DEPRESSION [None]
  - GAIT DISTURBANCE [None]
  - NERVOUS SYSTEM DISORDER [None]
  - NEUROTOXICITY [None]
  - WEIGHT DECREASED [None]
